FAERS Safety Report 14511667 (Version 3)
Quarter: 2020Q2

REPORT INFORMATION
  Report Type: Report from Study
  Country: DE (occurrence: DE)
  Receive Date: 20180209
  Receipt Date: 20200512
  Transmission Date: 20200713
  Serious: Yes (Other)
  Sender: FDA-Public Use
  Company Number: DE-BRISTOL-MYERS SQUIBB COMPANY-BMS-2018-011824

PATIENT
  Age: 84 Year
  Sex: Female
  Weight: 85 kg

DRUGS (1)
  1. APIXABAN [Suspect]
     Active Substance: APIXABAN
     Indication: EMBOLISM VENOUS
     Dosage: 10 MILLIGRAM, BID
     Route: 048
     Dates: start: 20161017

REACTIONS (2)
  - Thrombosis [Unknown]
  - Angina unstable [Unknown]

NARRATIVE: CASE EVENT DATE: 20180108
